FAERS Safety Report 7638767-1 (Version None)
Quarter: 2011Q3

REPORT INFORMATION
  Report Type: 
  Country: None (occurrence: None)
  Receive Date: 20110727
  Receipt Date: 20110713
  Transmission Date: 20111222
  Serious: Yes (Death)
  Sender: FDA-Public Use
  Company Number: CA-ROCHE-790029

PATIENT
  Age: 75 Year

DRUGS (27)
  1. BENZODIAZEPINES [Suspect]
     Route: 065
  2. CODEINE SULFATE [Concomitant]
  3. LASIX [Concomitant]
  4. NOVASEN [Concomitant]
  5. RISPERIDONE [Concomitant]
  6. ATROPINE [Concomitant]
  7. DESYREL [Concomitant]
  8. HYDROCORTISONE ACETATE [Concomitant]
  9. HYDROMORPHONE HCL [Suspect]
     Route: 065
  10. CITALOPRAM HYDROBROMIDE [Concomitant]
  11. POTASSIUM [Concomitant]
  12. TYLENOL-500 [Concomitant]
  13. TYLENOL W/ CODEINE NO. 3 [Concomitant]
  14. FENTANYL [Suspect]
     Route: 065
  15. ACTONEL [Concomitant]
  16. PLAVIX [Concomitant]
  17. COCAINE [Suspect]
     Route: 065
  18. COMBIVENT [Concomitant]
  19. MICRO-K [Concomitant]
  20. RISPERDAL [Concomitant]
  21. ZOCOR [Concomitant]
  22. DIAZEPAM [Suspect]
     Route: 065
  23. FENTANYL CITRATE [Suspect]
     Route: 008
  24. CELEBREX [Concomitant]
  25. ALDACTONE [Concomitant]
  26. GRAVOL TAB [Concomitant]
  27. TRAZODONE HCL [Concomitant]

REACTIONS (1)
  - TOXICITY TO VARIOUS AGENTS [None]
